FAERS Safety Report 10291966 (Version 1)
Quarter: 2014Q3

REPORT INFORMATION
  Report Type: Spontaneous
  Country: AU (occurrence: AU)
  Receive Date: 20140710
  Receipt Date: 20140710
  Transmission Date: 20150326
  Serious: Yes (Hospitalization)
  Sender: FDA-Public Use
  Company Number: AU-ABBVIE-14P-008-1257725-00

PATIENT
  Sex: Female

DRUGS (2)
  1. LIPIDIL [Suspect]
     Active Substance: FENOFIBRATE
     Dates: start: 20131203
  2. LIPIDIL [Suspect]
     Active Substance: FENOFIBRATE
     Indication: BLOOD CHOLESTEROL INCREASED
     Dates: start: 201312

REACTIONS (2)
  - Chest pain [Unknown]
  - Pancreatitis [Unknown]

NARRATIVE: CASE EVENT DATE: 20140619
